FAERS Safety Report 7472139-8 (Version None)
Quarter: 2011Q2

REPORT INFORMATION
  Report Type: 
  Country: None (occurrence: None)
  Receive Date: 20110511
  Receipt Date: 20110118
  Transmission Date: 20111010
  Serious: No
  Sender: FDA-Public Use
  Company Number: A0907871A

PATIENT
  Sex: Female

DRUGS (1)
  1. TYKERB [Suspect]
     Dosage: 1250MG PER DAY
     Route: 065
     Dates: start: 20110114

REACTIONS (9)
  - RASH [None]
  - POOR QUALITY SLEEP [None]
  - DIARRHOEA [None]
  - DRY MOUTH [None]
  - FLATULENCE [None]
  - ILL-DEFINED DISORDER [None]
  - GAIT DISTURBANCE [None]
  - PAIN IN EXTREMITY [None]
  - PRURITUS [None]
